FAERS Safety Report 8881479 (Version 3)
Quarter: 2012Q4

REPORT INFORMATION
  Report Type: 
  Country: JP (occurrence: JP)
  Receive Date: 20121102
  Receipt Date: 20121224
  Transmission Date: 20130627
  Serious: Yes (Life-Threatening, Other)
  Sender: FDA-Public Use
  Company Number: JP-ASTELLAS-2012JP009155

PATIENT
  Age: 29 Year
  Sex: Female
  Weight: 49 kg

DRUGS (7)
  1. PROGRAF [Suspect]
     Indication: IMMUNOSUPPRESSANT DRUG THERAPY
     Dosage: UNK
     Route: 048
     Dates: start: 2001
  2. PROGRAF [Suspect]
     Indication: RENAL TRANSPLANT
  3. AZANIN [Concomitant]
     Indication: IMMUNOSUPPRESSANT DRUG THERAPY
     Dosage: 50 mg, UID/QD
     Route: 048
     Dates: start: 2001
  4. AZANIN [Concomitant]
     Indication: RENAL TRANSPLANT
  5. MEDROL                             /00049601/ [Concomitant]
     Indication: IMMUNOSUPPRESSANT DRUG THERAPY
     Dosage: 4 mg, UID/QD
     Route: 048
     Dates: start: 2001
  6. MEDROL                             /00049601/ [Concomitant]
     Indication: RENAL TRANSPLANT
  7. COMELIAN [Concomitant]
     Indication: RENAL TRANSPLANT
     Dosage: 100 mg, tid
     Route: 048
     Dates: start: 2001

REACTIONS (4)
  - Exposure during pregnancy [Unknown]
  - Gestational hypertension [Recovered/Resolved]
  - Threatened labour [Recovering/Resolving]
  - Placental disorder [Unknown]
